FAERS Safety Report 13612789 (Version 1)
Quarter: 2017Q2

REPORT INFORMATION
  Report Type: Spontaneous
  Country: US (occurrence: US)
  Receive Date: 20170605
  Receipt Date: 20170605
  Transmission Date: 20170830
  Serious: No
  Sender: FDA-Public Use
  Company Number: US-ALLERGAN-1713116US

PATIENT
  Age: 44 Year
  Sex: Female

DRUGS (1)
  1. KYBELLA [Suspect]
     Active Substance: DEOXYCHOLIC ACID
     Indication: FAT TISSUE INCREASED
     Dosage: 4 VIALS, SINGLE
     Route: 058
     Dates: start: 20170317, end: 20170317

REACTIONS (5)
  - Lip injury [Unknown]
  - Nerve injury [Unknown]
  - Hypoaesthesia [Unknown]
  - Facial paresis [Unknown]
  - Swelling [Unknown]

NARRATIVE: CASE EVENT DATE: 20170317
